FAERS Safety Report 7024381-8 (Version None)
Quarter: 2010Q4

REPORT INFORMATION
  Report Type: 
  Country: None (occurrence: None)
  Receive Date: 20101001
  Receipt Date: 20100927
  Transmission Date: 20110411
  Serious: Yes (Other)
  Sender: FDA-Public Use
  Company Number: US-RB-006824-10

PATIENT
  Age: 57 Year
  Sex: Female

DRUGS (2)
  1. SUBOXONE TABLET [Suspect]
     Indication: DRUG DEPENDENCE
     Route: 060
     Dates: start: 20091210
  2. MULTI-VITAMINS [Concomitant]
     Indication: ROUTINE HEALTH MAINTENANCE
     Dosage: 1 TABLET DAILY
     Route: 065

REACTIONS (6)
  - INTENTIONAL DRUG MISUSE [None]
  - IRRITABLE BOWEL SYNDROME [None]
  - NIGHTMARE [None]
  - PANIC ATTACK [None]
  - RESTLESSNESS [None]
  - SUICIDAL IDEATION [None]
